FAERS Safety Report 8260881-0 (Version None)
Quarter: 2012Q2

REPORT INFORMATION
  Report Type: 
  Country: None (occurrence: None)
  Receive Date: 20120402
  Receipt Date: 20120321
  Transmission Date: 20120825
  Serious: Yes (Hospitalization)
  Sender: FDA-Public Use
  Company Number: AMAG201200146

PATIENT
  Age: 82 Year
  Sex: Male
  Weight: 65.8 kg

DRUGS (14)
  1. FERAHEME [Suspect]
     Indication: IRON DEFICIENCY ANAEMIA
     Dosage: 510 MG, SINGLE, IV PUSH
     Route: 042
     Dates: start: 20120305, end: 20120305
  2. FERAHEME [Suspect]
     Indication: NEPHROGENIC ANAEMIA
     Dosage: 510 MG, SINGLE, IV PUSH
     Route: 042
     Dates: start: 20120305, end: 20120305
  3. AMLODIPINE (AMLODIPINE MALEATE) [Concomitant]
  4. ASPIRIN [Concomitant]
  5. SIMVASTATIN [Concomitant]
  6. DOCUSATE SODIUM (DOCUSATE SODIUM) [Concomitant]
  7. CALCIUM CITRATE W/COLECALCIFEROL (CALCIUM CITRATE W/COLECALCIFEROL) [Concomitant]
  8. ACETAMINOPHEN [Concomitant]
  9. BUMETANIDE [Concomitant]
  10. GABAPENTIN [Concomitant]
  11. GEMFIBROZIL [Concomitant]
  12. OMEPRAZOLE [Concomitant]
  13. DIPHENHYDRAMINE HCL [Concomitant]
  14. ULTRAM [Concomitant]

REACTIONS (16)
  - PULMONARY CONGESTION [None]
  - CYANOSIS [None]
  - PROSTATIC DISORDER [None]
  - UNRESPONSIVE TO STIMULI [None]
  - HAEMATURIA [None]
  - HEART RATE INCREASED [None]
  - ACUTE RESPIRATORY FAILURE [None]
  - WHITE BLOOD CELLS URINE POSITIVE [None]
  - HYPERTENSION [None]
  - RALES [None]
  - INJURY [None]
  - BLOOD CREATININE INCREASED [None]
  - ANAPHYLACTIC SHOCK [None]
  - RESPIRATORY ARREST [None]
  - AGITATION [None]
  - URETHRAL INJURY [None]
